FAERS Safety Report 4506677-4 (Version None)
Quarter: 2004Q4

REPORT INFORMATION
  Report Type: 
  Country: None (occurrence: None)
  Receive Date: 20041117
  Receipt Date: 20041105
  Transmission Date: 20050328
  Serious: Yes (Hospitalization)
  Sender: FDA-Public Use
  Company Number: 2004088587

PATIENT
  Sex: Male

DRUGS (2)
  1. UNISOM [Suspect]
     Dosage: 2 SLEEPTABS ONE TIME, ORAL
     Route: 048
     Dates: start: 20041101, end: 20041101
  2. ANTIHISTAMINES (ANTIHISTAMINES) [Suspect]
     Dosage: ORAL
     Route: 048

REACTIONS (1)
  - HALLUCINATION [None]
